FAERS Safety Report 14795441 (Version 1)
Quarter: 2018Q2

REPORT INFORMATION
  Report Type: Spontaneous
  Country: US (occurrence: US)
  Receive Date: 20180423
  Receipt Date: 20180423
  Transmission Date: 20180711
  Serious: Yes (Other)
  Sender: FDA-Public Use
  Company Number: US-BEH-2018089866

PATIENT
  Age: 18 Year
  Sex: Male
  Weight: 52.15 kg

DRUGS (27)
  1. MELOXICAM. [Concomitant]
     Active Substance: MELOXICAM
  2. BACLOFEN ACTAVIS [Concomitant]
     Active Substance: BACLOFEN
  3. NYSTATIN. [Concomitant]
     Active Substance: NYSTATIN
  4. PROAIR HFA [Concomitant]
     Active Substance: ALBUTEROL SULFATE
  5. METHYLPHENIDATE. [Concomitant]
     Active Substance: METHYLPHENIDATE
  6. CLOBETASOL [Concomitant]
     Active Substance: CLOBETASOL
  7. ALINIA [Concomitant]
     Active Substance: NITAZOXANIDE
  8. PREVACID [Concomitant]
     Active Substance: LANSOPRAZOLE
  9. SERTRALINE [Concomitant]
     Active Substance: SERTRALINE HYDROCHLORIDE
  10. RIOMET                             /00082701/ [Concomitant]
  11. ZANTAC [Concomitant]
     Active Substance: RANITIDINE HYDROCHLORIDE
  12. HUMALOG [Concomitant]
     Active Substance: INSULIN LISPRO
  13. PROTOPIC [Concomitant]
     Active Substance: TACROLIMUS
  14. OMEPRAZOLE. [Concomitant]
     Active Substance: OMEPRAZOLE
  15. NASONEX [Concomitant]
     Active Substance: MOMETASONE FUROATE
  16. HIZENTRA [Suspect]
     Active Substance: HUMAN IMMUNOGLOBULIN G
     Indication: IMMUNODEFICIENCY
     Dosage: 13 G, EVERY WEEK ON FRIDAYS
     Route: 058
     Dates: start: 20121016
  17. HIZENTRA [Suspect]
     Active Substance: HUMAN IMMUNOGLOBULIN G
     Dosage: UNK
     Route: 058
  18. LEVETIRACETAM. [Concomitant]
     Active Substance: LEVETIRACETAM
  19. CYPROHEPTADINE. [Concomitant]
     Active Substance: CYPROHEPTADINE
  20. NAPROXEN. [Concomitant]
     Active Substance: NAPROXEN
  21. ENBREL [Concomitant]
     Active Substance: ETANERCEPT
  22. DIPHENHYDRAMINE. [Concomitant]
     Active Substance: DIPHENHYDRAMINE
  23. EPINEPHRINE. [Concomitant]
     Active Substance: EPINEPHRINE
  24. URSODIOL. [Concomitant]
     Active Substance: URSODIOL
  25. LYRICA [Concomitant]
     Active Substance: PREGABALIN
  26. ZOSYN [Concomitant]
     Active Substance: PIPERACILLIN SODIUM\TAZOBACTAM SODIUM
  27. AMANTADINE. [Concomitant]
     Active Substance: AMANTADINE HYDROCHLORIDE

REACTIONS (1)
  - Squamous cell carcinoma [Unknown]
